FAERS Safety Report 15990794 (Version 1)
Quarter: 2019Q1

REPORT INFORMATION
  Report Type: Spontaneous
  Country: US (occurrence: US)
  Receive Date: 20190221
  Receipt Date: 20190221
  Transmission Date: 20190418
  Serious: Yes (Hospitalization)
  Sender: FDA-Public Use
  Company Number: US-TEVA-2019-US-1014484

PATIENT
  Age: 22 Year
  Sex: Male

DRUGS (1)
  1. RISPERIDONE. [Suspect]
     Active Substance: RISPERIDONE
     Indication: SCHIZOAFFECTIVE DISORDER
     Route: 065

REACTIONS (3)
  - Electrocardiogram ST-T segment abnormal [Recovering/Resolving]
  - Electrocardiogram T wave inversion [Recovering/Resolving]
  - Pulmonary embolism [Recovering/Resolving]
